FAERS Safety Report 6749267-5 (Version None)
Quarter: 2010Q2

REPORT INFORMATION
  Report Type: 
  Country: None (occurrence: None)
  Receive Date: 20100601
  Receipt Date: 20100519
  Transmission Date: 20101027
  Serious: Yes (Hospitalization, Other)
  Sender: FDA-Public Use
  Company Number: PHHY2010NL32178

PATIENT
  Sex: Female

DRUGS (2)
  1. SANDOSTATIN LAR [Suspect]
     Indication: ABDOMINAL DISCOMFORT
     Dosage: 30 MG, ONCE IN 4 WEEKS
     Route: 030
  2. SANDOSTATIN LAR [Suspect]
     Indication: DYSPEPSIA

REACTIONS (12)
  - ABDOMINAL DISCOMFORT [None]
  - ABDOMINAL OPERATION [None]
  - ABDOMINAL PAIN [None]
  - CHOLELITHOTOMY [None]
  - DIARRHOEA [None]
  - FLATULENCE [None]
  - HYPOGLYCAEMIA [None]
  - INFECTION [None]
  - PERITONITIS [None]
  - STRESS [None]
  - WAIST CIRCUMFERENCE INCREASED [None]
  - WEIGHT INCREASED [None]
